FAERS Safety Report 17431560 (Version 3)
Quarter: 2023Q2

REPORT INFORMATION
  Report Type: Report from Study
  Country: CO (occurrence: CO)
  Receive Date: 20200218
  Receipt Date: 20230424
  Transmission Date: 20230722
  Serious: Yes (Hospitalization)
  Sender: FDA-Public Use
  Company Number: CO-002147023-PHHY2015CO045618

PATIENT

DRUGS (3)
  1. RUXOLITINIB [Suspect]
     Active Substance: RUXOLITINIB
     Indication: Myelofibrosis
     Dosage: 20 MG, BID
     Route: 048
     Dates: start: 20141103
  2. RUXOLITINIB [Suspect]
     Active Substance: RUXOLITINIB
     Dosage: 20 MG, QD
     Route: 048
     Dates: start: 20141120
  3. RUXOLITINIB [Suspect]
     Active Substance: RUXOLITINIB
     Dosage: 20 MG, QD (ONE OF 20 MG, DAILY)
     Route: 048

REACTIONS (14)
  - Back pain [Unknown]
  - Depressed mood [Unknown]
  - Pain in extremity [Unknown]
  - Groin pain [Unknown]
  - Headache [Recovering/Resolving]
  - Sleep disorder [Unknown]
  - Chest pain [Unknown]
  - Pain [Recovering/Resolving]
  - Yellow skin [Unknown]
  - Wrong technique in product usage process [Unknown]
  - Off label use [Unknown]
  - Product prescribing error [Unknown]
  - General physical health deterioration [Unknown]
  - Urinary tract infection [Recovered/Resolved]

NARRATIVE: CASE EVENT DATE: 20141120
